FAERS Safety Report 4449572-1 (Version None)
Quarter: 2004Q3

REPORT INFORMATION
  Report Type: 
  Country: None (occurrence: None)
  Receive Date: 20040913
  Receipt Date: 20040903
  Transmission Date: 20050211
  Serious: Yes (Hospitalization)
  Sender: FDA-Public Use
  Company Number: 2004-03-1180

PATIENT
  Age: 4 Month
  Weight: 9.5 kg

DRUGS (2)
  1. REBETOL [Suspect]
     Dates: start: 20020401, end: 20020610
  2. INTRON A [Suspect]
     Dates: start: 20020401, end: 20020610

REACTIONS (8)
  - ALANINE AMINOTRANSFERASE INCREASED [None]
  - ASPARTATE AMINOTRANSFERASE INCREASED [None]
  - BLOOD LACTATE DEHYDROGENASE INCREASED [None]
  - EPILEPSY [None]
  - HAEMOLYSIS [None]
  - INFANTILE SPASMS [None]
  - THERAPY NON-RESPONDER [None]
  - TRANSMISSION OF DRUG VIA SEMEN [None]
